FAERS Safety Report 7749664-5 (Version None)
Quarter: 2011Q3

REPORT INFORMATION
  Report Type: 
  Country: None (occurrence: None)
  Receive Date: 20110914
  Receipt Date: 20110907
  Transmission Date: 20111222
  Serious: Yes (Death, Hospitalization)
  Sender: FDA-Public Use
  Company Number: FR-ROCHE-665767

PATIENT
  Sex: Male
  Weight: 59 kg

DRUGS (14)
  1. MESNA [Concomitant]
     Indication: LYMPHOMA
     Dosage: FREQUENCY: DAY 2,3, 4,5 AND 6 EVERY MONTH
     Route: 042
     Dates: start: 20090428, end: 20090530
  2. CYCLOPHOSPHAMIDE [Suspect]
     Indication: DIFFUSE LARGE B-CELL LYMPHOMA
     Dosage: DOSE FORM; INFUSION.
     Route: 042
     Dates: start: 20090129, end: 20090403
  3. ZOCOR [Concomitant]
  4. IFOSFAMIDE [Concomitant]
     Indication: LYMPHOMA
     Dosage: FREQUENCY: DAY 2,3, 4,5 AND 6 EVERY MONTH
     Route: 042
     Dates: start: 20090428, end: 20090530
  5. CYTARABINE [Concomitant]
     Indication: LYMPHOMA
     Dosage: FREQUENCY DAY 2 AND DAY 15 EVERY MONTH
     Route: 042
     Dates: start: 20090701, end: 20090923
  6. RITUXIMAB [Suspect]
     Indication: DIFFUSE LARGE B-CELL LYMPHOMA
     Dosage: DOSE FORM: INFUSION.
     Route: 042
     Dates: start: 20090129, end: 20090403
  7. ETOPOSIDE [Concomitant]
     Indication: LYMPHOMA
     Dosage: FREQUENCY: DAY 2 , 3 AND 4 EVERY MONTH
     Route: 042
     Dates: start: 20090428, end: 20090528
  8. CARMUSTINE [Concomitant]
     Indication: LYMPHOMA
     Dosage: FREQUENCY: DAY 4 EVERY MONTH
     Route: 042
     Dates: start: 20090710, end: 20090925
  9. BEVACIZUMAB [Suspect]
     Indication: DIFFUSE LARGE B-CELL LYMPHOMA
     Dosage: DOSE FORM: INFUSION.
     Route: 042
     Dates: start: 20090129, end: 20090403
  10. METHOTREXATE [Concomitant]
     Indication: LYMPHOMA
     Dosage: FREQUENCY: DAY 1 AND 15 EVERY MONTH
     Route: 042
     Dates: start: 20090804, end: 20090804
  11. METHYLPREDNISOLONE [Concomitant]
     Indication: LYMPHOMA
     Dosage: FREQUENCY: DAY 5 EVERY MONTH
     Route: 042
     Dates: start: 20090711, end: 20090926
  12. DOXORUBICIN HCL [Suspect]
     Indication: DIFFUSE LARGE B-CELL LYMPHOMA
     Dosage: DOSE FORM: INFUSION.
     Route: 042
     Dates: start: 20090129, end: 20090403
  13. VINCRISTINE [Suspect]
     Indication: DIFFUSE LARGE B-CELL LYMPHOMA
     Dosage: DOSE FORM: INFUSION.
     Route: 042
     Dates: start: 20090129, end: 20090403
  14. PREDNISONE [Suspect]
     Indication: DIFFUSE LARGE B-CELL LYMPHOMA
     Route: 048
     Dates: start: 20090129, end: 20090403

REACTIONS (2)
  - LEUKOENCEPHALOPATHY [None]
  - FEBRILE NEUTROPENIA [None]
